FAERS Safety Report 7485134-X (Version None)
Quarter: 2011Q2

REPORT INFORMATION
  Report Type: 
  Country: None (occurrence: None)
  Receive Date: 20110517
  Receipt Date: 20101124
  Transmission Date: 20111010
  Serious: No
  Sender: FDA-Public Use
  Company Number: US-BAYER-2010-007548

PATIENT
  Sex: Female
  Weight: 69.841 kg

DRUGS (3)
  1. ALEVE (CAPLET) [Suspect]
     Indication: SCIATICA
     Dosage: 660 MG, QD
     Route: 048
     Dates: start: 20101101
  2. ADVAIR DISKUS 100/50 [Concomitant]
  3. SINGULAIR [Concomitant]

REACTIONS (1)
  - NO ADVERSE EVENT [None]
